FAERS Safety Report 4931032-2 (Version None)
Quarter: 2006Q1

REPORT INFORMATION
  Report Type: 
  Country: None (occurrence: None)
  Receive Date: 20060227
  Receipt Date: 20060215
  Transmission Date: 20060701
  Serious: Yes (Hospitalization)
  Sender: FDA-Public Use
  Company Number: 200610901BWH

PATIENT
  Age: 65 Year
  Sex: Male
  Weight: 50 kg

DRUGS (9)
  1. SORAFENIB [Suspect]
     Indication: NON-SMALL CELL LUNG CANCER
     Dosage: 400 MG BID ORAL
     Route: 048
     Dates: start: 20041116, end: 20050111
  2. ZOMETA [Concomitant]
  3. COLACE [Concomitant]
  4. COMBIVENT [Concomitant]
  5. DIOVAN [Concomitant]
  6. FLOVENT [Concomitant]
  7. MARINOL [Concomitant]
  8. OXANDRIN [Concomitant]
  9. PLENDIL [Concomitant]

REACTIONS (7)
  - DISEASE PROGRESSION [None]
  - DYSPNOEA [None]
  - FATIGUE [None]
  - GINGIVAL BLEEDING [None]
  - METASTASES TO CENTRAL NERVOUS SYSTEM [None]
  - OSTEONECROSIS [None]
  - PERIODONTAL DISEASE [None]
